FAERS Safety Report 11323605 (Version 1)
Quarter: 2015Q3

REPORT INFORMATION
  Report Type: Spontaneous
  Country: GB (occurrence: GB)
  Receive Date: 20150730
  Receipt Date: 20150730
  Transmission Date: 20151125
  Serious: Yes (Other)
  Sender: FDA-Public Use
  Company Number: GB-GLAXOSMITHKLINE-GB2015107567

PATIENT
  Age: 27 Year
  Sex: Female
  Weight: 50 kg

DRUGS (3)
  1. ATOVAQUONE. [Suspect]
     Active Substance: ATOVAQUONE
     Indication: MALARIA PROPHYLAXIS
     Route: 048
     Dates: start: 20150513, end: 20150621
  2. PROGUANIL [Suspect]
     Active Substance: PROGUANIL
     Indication: MALARIA PROPHYLAXIS
     Route: 048
     Dates: start: 20150513, end: 20150621
  3. PARACETAMOL [Concomitant]
     Active Substance: ACETAMINOPHEN
     Indication: ANALGESIC THERAPY
     Dates: start: 20150606

REACTIONS (8)
  - Pain in extremity [Recovering/Resolving]
  - Oesophageal ulcer [Recovering/Resolving]
  - Chest pain [Recovering/Resolving]
  - Dehydration [Recovering/Resolving]
  - Hypophagia [Recovering/Resolving]
  - Dyspepsia [Recovering/Resolving]
  - Back pain [Recovering/Resolving]
  - Odynophagia [Recovering/Resolving]

NARRATIVE: CASE EVENT DATE: 20150606
